FAERS Safety Report 9819410 (Version 1)
Quarter: 2013Q4

REPORT INFORMATION
  Report Type: Spontaneous
  Country: US (occurrence: None)
  Receive Date: 20131223
  Receipt Date: 20131223
  Transmission Date: 20140711
  Serious: Yes (Other)
  Sender: FDA-Public Use
  Company Number: 221101

PATIENT
  Sex: Female

DRUGS (1)
  1. PICATO (0.015%) GEL [Suspect]
     Indication: ACNE
     Dosage: DAILY TOPICAL
     Dates: start: 20130325, end: 20130327

REACTIONS (5)
  - Application site vesicles [None]
  - Application site scab [None]
  - Nasopharyngitis [None]
  - Off label use [None]
  - Off label use [None]
